FAERS Safety Report 21027941 (Version 1)
Quarter: 2022Q2

REPORT INFORMATION
  Report Type: Report from Study
  Country: US (occurrence: US)
  Receive Date: 20220630
  Receipt Date: 20220630
  Transmission Date: 20220721
  Serious: Yes (Hospitalization, Other)
  Sender: FDA-Public Use
  Company Number: US-PFIZER INC-202200789815

PATIENT
  Age: 66 Year
  Sex: Female

DRUGS (4)
  1. REVATIO [Suspect]
     Active Substance: SILDENAFIL CITRATE
     Indication: Pulmonary hypertension
     Dosage: 80 MG, 3X/DAY
     Dates: start: 202106
  2. AMBRISENTAN [Suspect]
     Active Substance: AMBRISENTAN
     Indication: Pulmonary hypertension
     Dosage: 10 MG, 1X/DAY
     Dates: start: 202001
  3. TYVASO [Suspect]
     Active Substance: TREPROSTINIL
     Indication: Pulmonary hypertension
     Dosage: 90 UG, 4X/DAY
     Dates: start: 20160315
  4. TYVASO [Suspect]
     Active Substance: TREPROSTINIL
     Dosage: 0.6 MG

REACTIONS (6)
  - Pneumonia [Unknown]
  - Bronchitis [Unknown]
  - Influenza [Unknown]
  - Plicated tongue [Unknown]
  - Off label use [Unknown]
  - Product use issue [Unknown]

NARRATIVE: CASE EVENT DATE: 20210601
